FAERS Safety Report 10220540 (Version 1)
Quarter: 2014Q2

REPORT INFORMATION
  Report Type: Spontaneous
  Country: US (occurrence: US)
  Receive Date: 20140606
  Receipt Date: 20140606
  Transmission Date: 20141212
  Serious: No
  Sender: FDA-Public Use
  Company Number: US-009507513-1405USA011869

PATIENT
  Age: 25 Year
  Sex: Female
  Weight: 63 kg

DRUGS (8)
  1. FUROSEMIDE [Suspect]
     Indication: CARDIAC FAILURE CONGESTIVE
     Dosage: 10 MG, QD
     Route: 048
  2. FUROSEMIDE [Suspect]
     Dosage: 20 MG, UNK
     Route: 042
  3. DIGOXIN [Concomitant]
  4. ELECTROLYTES (UNSPECIFIED) [Concomitant]
     Dosage: 100 ML, QH
     Route: 041
  5. LIDOCAINE [Concomitant]
  6. BUPIVACAINE HYDROCHLORIDE [Concomitant]
     Dosage: 10ML LOADING DOSE OF 0.125%
  7. EPINEPHRINE [Concomitant]
  8. FENTANYL [Concomitant]
     Dosage: 5 MICRO-G/ML GIVEN IN 3-4 ML INCREAMENTS

REACTIONS (1)
  - Exposure during pregnancy [Recovered/Resolved]
